FAERS Safety Report 23128309 (Version 2)
Quarter: 2024Q1

REPORT INFORMATION
  Report Type: Spontaneous
  Country: US (occurrence: US)
  Receive Date: 20231031
  Receipt Date: 20240119
  Transmission Date: 20240410
  Serious: Yes (Other)
  Sender: FDA-Public Use
  Company Number: US-CIPLA LTD.-2023US06695

PATIENT

DRUGS (1)
  1. LENALIDOMIDE [Suspect]
     Active Substance: LENALIDOMIDE
     Indication: Myelodysplastic syndrome
     Dosage: 2.5 MILLIGRAM, QD FOR 21 DAYS THEN 7 DAYS
     Route: 065

REACTIONS (3)
  - Macular degeneration [Unknown]
  - Alopecia [Unknown]
  - Arthralgia [Unknown]
